FAERS Safety Report 19711161 (Version 1)
Quarter: 2021Q3

REPORT INFORMATION
  Report Type: Spontaneous
  Country: DE (occurrence: DE)
  Receive Date: 20210817
  Receipt Date: 20210817
  Transmission Date: 20211014
  Serious: Yes (Hospitalization)
  Sender: FDA-Public Use
  Company Number: DE-PFIZER INC-202100987886

PATIENT
  Age: 78 Year
  Sex: Female
  Weight: 63 kg

DRUGS (7)
  1. METAMIZOL [Suspect]
     Active Substance: METAMIZOLE SODIUM
     Route: 048
  2. PANTOPRAZOLE [Concomitant]
     Active Substance: PANTOPRAZOLE
     Route: 048
  3. TORASEMID [Suspect]
     Active Substance: TORSEMIDE
     Route: 048
  4. ESTRIOL [Concomitant]
     Active Substance: ESTRIOL
     Route: 067
  5. PREGABALIN. [Suspect]
     Active Substance: PREGABALIN
     Route: 048
  6. COLECALCIFEROL [Concomitant]
     Active Substance: CHOLECALCIFEROL
     Route: 048
  7. ELIQUIS [Suspect]
     Active Substance: APIXABAN
     Route: 048

REACTIONS (10)
  - Dyspnoea [Unknown]
  - Haematuria [Unknown]
  - Dysphagia [Unknown]
  - Dysuria [Unknown]
  - Tachypnoea [Unknown]
  - Decreased appetite [Unknown]
  - General physical health deterioration [Unknown]
  - Hypothermia [Unknown]
  - Thirst decreased [Unknown]
  - Hypotension [Unknown]
